FAERS Safety Report 6426876-4 (Version None)
Quarter: 2009Q4

REPORT INFORMATION
  Report Type: 
  Country: None (occurrence: None)
  Receive Date: 20091103
  Receipt Date: 20091103
  Transmission Date: 20100525
  Serious: No
  Sender: FDA-Public Use
  Company Number: None

PATIENT
  Age: 61 Year
  Sex: Male
  Weight: 66.6788 kg

DRUGS (1)
  1. TERAZOSIN HCL [Suspect]
     Dates: start: 20061222

REACTIONS (1)
  - HYPOTENSION [None]
